FAERS Safety Report 9758326 (Version 1)
Quarter: 2013Q4

REPORT INFORMATION
  Report Type: Spontaneous
  Country: US (occurrence: None)
  Receive Date: 20131213
  Receipt Date: 20131213
  Transmission Date: 20140711
  Serious: Yes (Life-Threatening, Hospitalization, Disabling)
  Sender: FDA-Public Use
  Company Number: None

PATIENT
  Age: 41 Year
  Sex: 0
  Weight: 83.92 kg

DRUGS (6)
  1. CEFTRIAXONE SODIUM [Suspect]
     Indication: EYE INFECTION
     Dosage: BY INSECTION
     Dates: start: 20131114, end: 20131114
  2. LORAZEPAM [Concomitant]
  3. PAROXETINE [Concomitant]
  4. TYNEOL [Concomitant]
  5. PRILOSEC [Concomitant]
  6. PREDNISONE [Concomitant]

REACTIONS (27)
  - Chest pain [None]
  - Dizziness [None]
  - Nausea [None]
  - Chills [None]
  - Tremor [None]
  - Hyperhidrosis [None]
  - Heart rate increased [None]
  - Vision blurred [None]
  - Asthenia [None]
  - Fatigue [None]
  - Dyspnoea [None]
  - Thirst [None]
  - Decreased appetite [None]
  - Vomiting [None]
  - Cold sweat [None]
  - Restlessness [None]
  - Musculoskeletal stiffness [None]
  - Diarrhoea [None]
  - Mental disorder [None]
  - Anxiety [None]
  - Paranoia [None]
  - Serum sickness [None]
  - Panic attack [None]
  - Headache [None]
  - Weight decreased [None]
  - Pallor [None]
  - Amnesia [None]
